FAERS Safety Report 4320109-0 (Version None)
Quarter: 2004Q1

REPORT INFORMATION
  Report Type: 
  Country: None (occurrence: None)
  Receive Date: 20040317
  Receipt Date: 20040213
  Transmission Date: 20041129
  Serious: Yes (Hospitalization, Other)
  Sender: FDA-Public Use
  Company Number: USA-2003-0006107

PATIENT
  Age: 27 Year
  Sex: Female
  Weight: 94.8 kg

DRUGS (5)
  1. OXYCONTIN [Suspect]
     Indication: PAIN
  2. PRENATAL VITAMINS (ERGOCALCIFEROL ASCORBIC ACID) [Concomitant]
  3. PYRIDOXINE HYDROCHLORIDE, THIAMINE, [Concomitant]
  4. INSULIN [Concomitant]
  5. PHENEGRAN ^SPECIA^ (PRMETHAZINE HYDROCHLORIDE) [Concomitant]

REACTIONS (15)
  - ABDOMINAL PAIN [None]
  - ANXIETY [None]
  - BLOOD GLUCOSE DECREASED [None]
  - BLOOD GLUCOSE INCREASED [None]
  - BREECH PRESENTATION [None]
  - CAESAREAN SECTION [None]
  - COMPLICATIONS OF MATERNAL EXPOSURE TO THERAPEUTIC DRUGS [None]
  - DEPRESSION [None]
  - DRUG DEPENDENCE [None]
  - DRUG EXPOSURE DURING PREGNANCY [None]
  - METRORRHAGIA [None]
  - PAIN [None]
  - PREMATURE BABY [None]
  - PREMATURE LABOUR [None]
  - UTERINE HYPOTONUS [None]
